FAERS Safety Report 13507425 (Version 7)
Quarter: 2019Q2

REPORT INFORMATION
  Report Type: Spontaneous
  Country: JP (occurrence: JP)
  Receive Date: 20170503
  Receipt Date: 20190429
  Transmission Date: 20190711
  Serious: Yes (Hospitalization)
  Sender: FDA-Public Use
  Company Number: JP-CONCORDIA PHARMACEUTICALS INC.-GSH201704-002637

PATIENT
  Age: 31 Year
  Sex: Female
  Weight: 63 kg

DRUGS (6)
  1. PREDONINE [Concomitant]
     Active Substance: PREDNISOLONE
     Dosage: STARED TO BE TAPERED
     Dates: start: 20170225
  2. PLAQUENIL [Suspect]
     Active Substance: HYDROXYCHLOROQUINE SULFATE
     Dosage: 200 MG QD AND 400 MG QD, ALTERNATIVELY
     Route: 048
     Dates: start: 20170104, end: 20170225
  3. PREDONINE [Concomitant]
     Active Substance: PREDNISOLONE
     Dates: start: 20170202
  4. PREDONINE [Concomitant]
     Active Substance: PREDNISOLONE
     Indication: SYSTEMIC LUPUS ERYTHEMATOSUS
     Route: 048
     Dates: start: 2008
  5. PREDONINE [Concomitant]
     Active Substance: PREDNISOLONE
     Dates: start: 2016
  6. PLAQUENIL [Suspect]
     Active Substance: HYDROXYCHLOROQUINE SULFATE
     Indication: SYSTEMIC LUPUS ERYTHEMATOSUS
     Dosage: 200 MG QD AND 400 MG QD, ALTERNATIVELY
     Route: 048
     Dates: start: 20170104, end: 20170225

REACTIONS (3)
  - Exposure during pregnancy [Unknown]
  - Generalised erythema [Recovered/Resolved]
  - Pustular psoriasis [Recovered/Resolved]

NARRATIVE: CASE EVENT DATE: 20170202
